FAERS Safety Report 14054975 (Version 1)
Quarter: 2017Q4

REPORT INFORMATION
  Report Type: Spontaneous
  Country: US (occurrence: None)
  Receive Date: 20171006
  Receipt Date: 20171006
  Transmission Date: 20180321
  Serious: Yes (Hospitalization)
  Sender: FDA-Public Use
  Company Number: None

PATIENT
  Age: 61 Year
  Sex: Female
  Weight: 116.3 kg

DRUGS (1)
  1. MEMANTINE HYDROCHLORIDE. [Suspect]
     Active Substance: MEMANTINE HYDROCHLORIDE
     Dates: end: 20170926

REACTIONS (5)
  - Pleural effusion [None]
  - Wheezing [None]
  - Dyspnoea [None]
  - Atelectasis [None]
  - Lung consolidation [None]

NARRATIVE: CASE EVENT DATE: 20170927
